FAERS Safety Report 6996750-3 (Version None)
Quarter: 2010Q3

REPORT INFORMATION
  Report Type: 
  Country: None (occurrence: None)
  Receive Date: 20100918
  Receipt Date: 20090629
  Transmission Date: 20110219
  Serious: No
  Sender: FDA-Public Use
  Company Number: US-WYE-H09905809

PATIENT
  Sex: Female
  Weight: 72.19 kg

DRUGS (9)
  1. PREMPRO [Suspect]
     Indication: HORMONE REPLACEMENT THERAPY
     Dosage: 0.625MG/ 2.5MG
     Route: 048
     Dates: start: 20090317, end: 20090624
  2. PREMPRO [Suspect]
     Indication: IRRITABILITY
  3. PREMPRO [Suspect]
     Indication: HOT FLUSH
  4. CYMBALTA [Concomitant]
  5. CYTOMEL [Concomitant]
  6. WELLBUTRIN [Concomitant]
  7. LITHIUM CARBONATE [Concomitant]
  8. LIBRIUM [Concomitant]
  9. SEROQUEL [Concomitant]

REACTIONS (3)
  - AMNESIA [None]
  - VISION BLURRED [None]
  - WEIGHT INCREASED [None]
